FAERS Safety Report 24318251 (Version 2)
Quarter: 2024Q4

REPORT INFORMATION
  Report Type: Spontaneous
  Country: PK (occurrence: PK)
  Receive Date: 20240913
  Receipt Date: 20241107
  Transmission Date: 20250114
  Serious: Yes (Other)
  Sender: AMGEN
  Company Number: PK-PFIZER INC-PV202400115957

PATIENT
  Age: 35 Year
  Sex: Female

DRUGS (2)
  1. ENBREL [Suspect]
     Active Substance: ETANERCEPT
     Indication: Spondylitis
     Dosage: 50 MG, WEEKLY
     Route: 058
  2. ENBREL [Suspect]
     Active Substance: ETANERCEPT
     Dosage: 50 MG, WEEKLY
     Route: 058
     Dates: start: 2024

REACTIONS (2)
  - Abortion spontaneous [Unknown]
  - Off label use [Unknown]
